FAERS Safety Report 11012601 (Version 1)
Quarter: 2015Q2

REPORT INFORMATION
  Report Type: Spontaneous
  Country: US (occurrence: None)
  Receive Date: 20150410
  Receipt Date: 20150410
  Transmission Date: 20150821
  Serious: No
  Sender: FDA-Public Use
  Company Number: None

PATIENT
  Age: 75 Year
  Sex: Female
  Weight: 83.92 kg

DRUGS (9)
  1. SIMVASTATIN. [Concomitant]
     Active Substance: SIMVASTATIN
  2. MELOXICAM. [Concomitant]
     Active Substance: MELOXICAM
  3. MELATONIN [Concomitant]
     Active Substance: MELATONIN
  4. BACLOFEN. [Suspect]
     Active Substance: BACLOFEN
     Indication: SPINAL COLUMN STENOSIS
     Dosage: TAKEN BY MOUTH
     Dates: start: 20150321, end: 20150322
  5. BACLOFEN. [Suspect]
     Active Substance: BACLOFEN
     Indication: MYALGIA
     Dosage: TAKEN BY MOUTH
     Dates: start: 20150321, end: 20150322
  6. VITAMIN D [Concomitant]
     Active Substance: CHOLECALCIFEROL
  7. ASPIRIN. [Concomitant]
     Active Substance: ASPIRIN
  8. METOPROLOL TARTRATE. [Concomitant]
     Active Substance: METOPROLOL TARTRATE
  9. OMEPRAZOLE. [Concomitant]
     Active Substance: OMEPRAZOLE

REACTIONS (3)
  - Dizziness [None]
  - Nausea [None]
  - Blood pressure increased [None]

NARRATIVE: CASE EVENT DATE: 20150322
